FAERS Safety Report 12784820 (Version 1)
Quarter: 2016Q3

REPORT INFORMATION
  Report Type: Spontaneous
  Country: FR (occurrence: FR)
  Receive Date: 20160927
  Receipt Date: 20160927
  Transmission Date: 20161109
  Serious: Yes (Hospitalization)
  Sender: FDA-Public Use
  Company Number: FR-SA-2016SA177040

PATIENT
  Age: 84 Year
  Sex: Female

DRUGS (3)
  1. RIFADINE [Suspect]
     Active Substance: RIFAMPIN
     Route: 048
     Dates: start: 20160810, end: 20160910
  2. OFLOCET [Suspect]
     Active Substance: OFLOXACIN
     Route: 048
     Dates: start: 20160810, end: 20160910
  3. TARGOCID [Suspect]
     Active Substance: TEICOPLANIN
     Dosage: FORM: LYOPHILISATE AND SOLUTION FOR PARENTERAL USE?ROUTE: INTRAVENOUS (INFUSION)
     Dates: start: 20160810, end: 20160910

REACTIONS (1)
  - Drug reaction with eosinophilia and systemic symptoms [Recovered/Resolved]

NARRATIVE: CASE EVENT DATE: 20160906
